FAERS Safety Report 16927245 (Version 1)
Quarter: 2019Q4

REPORT INFORMATION
  Report Type: Spontaneous
  Country: FR (occurrence: FR)
  Receive Date: 20191016
  Receipt Date: 20191016
  Transmission Date: 20200122
  Serious: Yes (Hospitalization)
  Sender: FDA-Public Use
  Company Number: FR-009507513-1910FRA007105

PATIENT
  Age: 40 Year
  Sex: Female
  Weight: 50.2 kg

DRUGS (5)
  1. OROMONE [Concomitant]
     Active Substance: ESTRADIOL
  2. PUREGON PEN [Suspect]
     Active Substance: FOLLITROPIN
     Indication: CONTROLLED OVARIAN STIMULATION
     Dosage: 200 INTERNATIONAL UNIT, QD. CONCENTRATION: 900 UI/1.08ML
     Route: 058
     Dates: start: 20190607, end: 20190614
  3. FOLLISTIM AQ [Suspect]
     Active Substance: FOLLITROPIN
  4. ORGALUTRAN [Suspect]
     Active Substance: GANIRELIX ACETATE
     Indication: CONTROLLED OVARIAN STIMULATION
     Dosage: 0.25 MILLIGRAM, QD. CONCENTRATION: 0.25MG/0.5ML
     Route: 058
     Dates: start: 20190613, end: 20190615
  5. OVITRELLE [Suspect]
     Active Substance: CHORIOGONADOTROPIN ALFA
     Indication: CONTROLLED OVARIAN STIMULATION
     Dosage: 250 MILLIGRAM, QD
     Route: 058
     Dates: start: 20190615

REACTIONS (2)
  - Ovarian hyperstimulation syndrome [Recovered/Resolved]
  - Pelvic fluid collection [Recovered/Resolved]

NARRATIVE: CASE EVENT DATE: 20190701
